FAERS Safety Report 9958494 (Version 1)
Quarter: 2014Q1

REPORT INFORMATION
  Report Type: Spontaneous
  Country: GB (occurrence: GB)
  Receive Date: 20140305
  Receipt Date: 20140305
  Transmission Date: 20141002
  Serious: Yes (Other)
  Sender: FDA-Public Use
  Company Number: GB-DRREDDYS-USA/UKI/14/0038554

PATIENT
  Age: 74 Year
  Sex: Female

DRUGS (1)
  1. CLOPIDOGREL BISULFATE [Suspect]
     Indication: PROPHYLAXIS
     Route: 065

REACTIONS (4)
  - Drug interaction [Recovered/Resolved]
  - Contusion [Recovered/Resolved]
  - Haematuria [Recovered/Resolved]
  - Vaginal haemorrhage [Recovered/Resolved]
